FAERS Safety Report 4770992-X (Version None)
Quarter: 2005Q3

REPORT INFORMATION
  Report Type: 
  Country: None (occurrence: None)
  Receive Date: 20050914
  Receipt Date: 20050809
  Transmission Date: 20060218
  Serious: Yes (Other)
  Sender: FDA-Public Use
  Company Number: MK200509-0092-1

PATIENT
  Age: 42 Year
  Sex: Female

DRUGS (1)
  1. OPTIRAY 240 [Suspect]
     Indication: SCAN BRAIN
     Dosage: 40 ML, IV, ONCE
     Route: 042

REACTIONS (8)
  - ANAPHYLACTIC REACTION [None]
  - ANXIETY [None]
  - FACE OEDEMA [None]
  - LARYNGEAL OEDEMA [None]
  - NAUSEA [None]
  - PRURITUS [None]
  - RASH MACULO-PAPULAR [None]
  - VERTIGO [None]
